FAERS Safety Report 25570062 (Version 1)
Quarter: 2025Q3

REPORT INFORMATION
  Report Type: Spontaneous
  Country: CN (occurrence: CN)
  Receive Date: 20250717
  Receipt Date: 20250717
  Transmission Date: 20251021
  Serious: Yes (Life-Threatening)
  Sender: BEIGENE
  Company Number: CN-ELI_LILLY_AND_COMPANY-CN202502005342

PATIENT
  Age: 68 Year
  Weight: 72.5 kg

DRUGS (4)
  1. TISLELIZUMAB [Suspect]
     Active Substance: TISLELIZUMAB
     Indication: Transitional cell cancer of the renal pelvis and ureter
  2. TISLELIZUMAB [Suspect]
     Active Substance: TISLELIZUMAB
  3. CISPLATIN [Suspect]
     Active Substance: CISPLATIN
     Indication: Transitional cell cancer of the renal pelvis and ureter
  4. GEMCITABINE HYDROCHLORIDE [Suspect]
     Active Substance: GEMCITABINE HYDROCHLORIDE
     Indication: Transitional cell cancer of the renal pelvis and ureter

REACTIONS (1)
  - Renal salt-wasting syndrome [Unknown]
